FAERS Safety Report 5679151-X (Version None)
Quarter: 2008Q1

REPORT INFORMATION
  Report Type: 
  Country: None (occurrence: None)
  Receive Date: 20080325
  Receipt Date: 20080321
  Transmission Date: 20080703
  Serious: Yes (Death)
  Sender: FDA-Public Use
  Company Number: US-SANOFI-SYNTHELABO-F01200800353

PATIENT
  Sex: Male
  Weight: 77.1 kg

DRUGS (3)
  1. CAPECITABINE [Suspect]
     Route: 048
     Dates: start: 20080207, end: 20080229
  2. DOCETAXEL [Suspect]
     Route: 042
     Dates: start: 20080227, end: 20080227
  3. OXALIPLATIN [Suspect]
     Indication: GASTRIC CANCER
     Route: 042
     Dates: start: 20080227, end: 20080227

REACTIONS (1)
  - INTESTINAL PERFORATION [None]
